FAERS Safety Report 10835914 (Version 1)
Quarter: 2015Q1

REPORT INFORMATION
  Report Type: Report from Study
  Country: US (occurrence: US)
  Receive Date: 20150219
  Receipt Date: 20150219
  Transmission Date: 20150721
  Serious: No
  Sender: FDA-Public Use
  Company Number: US-ABBVIE-14P-163-1205120-00

PATIENT
  Age: 68 Year
  Sex: Male

DRUGS (4)
  1. ASACOL [Concomitant]
     Active Substance: MESALAMINE
     Indication: CROHN^S DISEASE
  2. HUMIRA [Suspect]
     Active Substance: ADALIMUMAB
     Indication: CROHN^S DISEASE
  3. UNKNOWN MEDICATION [Concomitant]
     Active Substance: UNSPECIFIED INGREDIENT
     Indication: PROSTATIC DISORDER
     Route: 048
  4. UNKNOWN MEDICATION [Concomitant]
     Active Substance: UNSPECIFIED INGREDIENT
     Indication: PROSTATIC DISORDER
     Route: 048

REACTIONS (6)
  - Injection site pain [Recovering/Resolving]
  - Injection site papule [Recovering/Resolving]
  - Wrong technique in drug usage process [Recovering/Resolving]
  - Injection site swelling [Recovering/Resolving]
  - Drug dose omission [Unknown]
  - Device issue [Unknown]

NARRATIVE: CASE EVENT DATE: 2013
